FAERS Safety Report 17722892 (Version 2)
Quarter: 2020Q2

REPORT INFORMATION
  Report Type: Spontaneous
  Country: DE (occurrence: DE)
  Receive Date: 20200429
  Receipt Date: 20200505
  Transmission Date: 20200714
  Serious: Yes (Hospitalization, Other)
  Sender: FDA-Public Use
  Company Number: DE-PFIZER INC-2020171396

PATIENT
  Age: 87 Year
  Sex: Female
  Weight: 74.3 kg

DRUGS (7)
  1. NIFEHEXAL [Concomitant]
     Active Substance: NIFEDIPINE
     Dosage: UNK, AS NEEDED, SOLUTION
  2. CELECOXIB. [Suspect]
     Active Substance: CELECOXIB
     Dosage: 100 MG, CYCLIC (1-0-1-0)
  3. TORASEMID [Concomitant]
     Active Substance: TORSEMIDE
     Dosage: 10 MG, CYCLIC (0.5-0-0-0 )
  4. PANTOPRAZOL [PANTOPRAZOLE] [Concomitant]
     Active Substance: PANTOPRAZOLE
     Dosage: 20 MG, CYCLIC (1-0-0-0 )
  5. RAMIPRIL. [Concomitant]
     Active Substance: RAMIPRIL
     Dosage: 2.5 MG, CYCLIC (1-0-0-0)
  6. BISOPROLOL [Concomitant]
     Active Substance: BISOPROLOL
     Dosage: 10 MG, CYCLIC (0.5-0-0-0)
  7. ACETYLSALICYLIC ACID [Suspect]
     Active Substance: ASPIRIN
     Dosage: 100 MG, CYCLIC (1-0-0-0)

REACTIONS (5)
  - General physical health deterioration [Unknown]
  - Haematochezia [Unknown]
  - Abdominal pain [Unknown]
  - Product prescribing error [Unknown]
  - Dyspnoea exertional [Unknown]
